FAERS Safety Report 9625693 (Version 3)
Quarter: 2014Q1

REPORT INFORMATION
  Report Type: Report from Study
  Country: SK (occurrence: SK)
  Receive Date: 20131016
  Receipt Date: 20140127
  Transmission Date: 20141002
  Serious: Yes (Life-Threatening, Hospitalization)
  Sender: FDA-Public Use
  Company Number: SK-JNJFOC-20131008141

PATIENT
  Age: 78 Year
  Sex: Male
  Weight: 100 kg

DRUGS (1)
  1. USTEKINUMAB [Suspect]
     Indication: PSORIASIS
     Route: 058
     Dates: start: 201109, end: 20130607

REACTIONS (1)
  - Acute myocardial infarction [Recovered/Resolved]
